FAERS Safety Report 10376151 (Version 1)
Quarter: 2014Q3

REPORT INFORMATION
  Report Type: Spontaneous
  Country: US (occurrence: US)
  Receive Date: 20140811
  Receipt Date: 20140811
  Transmission Date: 20150326
  Serious: No
  Sender: FDA-Public Use
  Company Number: US-ASTRAZENECA-2013SE63681

PATIENT
  Age: 64 Year
  Sex: Female

DRUGS (4)
  1. AROMASIN [Suspect]
     Active Substance: EXEMESTANE
     Route: 065
  2. LEXAPRO [Suspect]
     Active Substance: ESCITALOPRAM OXALATE
     Route: 065
  3. ARIMIDEX [Suspect]
     Active Substance: ANASTROZOLE
     Route: 048
  4. FEMARA [Suspect]
     Active Substance: LETROZOLE
     Route: 065

REACTIONS (7)
  - Joint swelling [Unknown]
  - Insomnia [Unknown]
  - Nasal oedema [Unknown]
  - Seborrhoea [Unknown]
  - Anxiety [Unknown]
  - Feeling abnormal [Unknown]
  - Acne [Unknown]
